FAERS Safety Report 24059383 (Version 1)
Quarter: 2024Q3

REPORT INFORMATION
  Report Type: Spontaneous
  Country: ES (occurrence: ES)
  Receive Date: 20240708
  Receipt Date: 20240708
  Transmission Date: 20241017
  Serious: Yes (Life-Threatening, Hospitalization, Other)
  Sender: HIKMA
  Company Number: None

PATIENT
  Age: 47 Year
  Sex: Female

DRUGS (3)
  1. DACTINOMYCIN [Suspect]
     Active Substance: DACTINOMYCIN
     Indication: Gestational trophoblastic tumour
     Dosage: 1300 MICROGRAM, 1.0 CYCLICAL
     Route: 042
     Dates: start: 20240507, end: 20240508
  2. ETOPOSIDE [Suspect]
     Active Substance: ETOPOSIDE
     Indication: Gestational trophoblastic tumour
     Dosage: 400 MILLIGRAM, 1.0 CYCLICAL
     Route: 042
     Dates: start: 20240507, end: 20240508
  3. METHOTREXATE [Suspect]
     Active Substance: METHOTREXATE
     Indication: Gestational trophoblastic tumour
     Dosage: 600 MILLIGRAM
     Route: 042
     Dates: start: 20240507, end: 20240507

REACTIONS (3)
  - Pancytopenia [Recovering/Resolving]
  - Agranulocytosis [Recovered/Resolved]
  - Dermatitis acneiform [Recovered/Resolved]

NARRATIVE: CASE EVENT DATE: 20240510
